FAERS Safety Report 19768018 (Version 1)
Quarter: 2021Q3

REPORT INFORMATION
  Report Type: Report from Study
  Country: IL (occurrence: IL)
  Receive Date: 20210830
  Receipt Date: 20210830
  Transmission Date: 20211014
  Serious: Yes (Hospitalization)
  Sender: FDA-Public Use
  Company Number: IL-TAKEDA-2021TUS024040

PATIENT
  Age: 5 Year
  Sex: Male

DRUGS (2)
  1. IDURSULFASE [Suspect]
     Active Substance: IDURSULFASE
     Indication: MUCOPOLYSACCHARIDOSIS II
     Dosage: 2 VIALS, 1/WEEK
     Route: 042
     Dates: start: 20201014
  2. IDURSULFASE [Suspect]
     Active Substance: IDURSULFASE
     Dosage: 8 VIALS, 1/WEEK
     Route: 042
     Dates: start: 20201203

REACTIONS (3)
  - Pyrexia [Not Recovered/Not Resolved]
  - Ear disorder [Not Recovered/Not Resolved]
  - Rhinorrhoea [Not Recovered/Not Resolved]

NARRATIVE: CASE EVENT DATE: 20210412
